FAERS Safety Report 16064766 (Version 2)
Quarter: 2019Q2

REPORT INFORMATION
  Report Type: Not Available
  Country: US (occurrence: US)
  Receive Date: 20190312
  Receipt Date: 20190405
  Transmission Date: 20190711
  Serious: Yes (Death, Hospitalization)
  Sender: FDA-Public Use
  Company Number: US-NEUROCRINE BIOSCIENCES INC.-2019NBI00615

PATIENT
  Age: 69 Year
  Sex: Male

DRUGS (5)
  1. TAMSULOSIN [Concomitant]
     Active Substance: TAMSULOSIN
  2. OLANZAPINE. [Concomitant]
     Active Substance: OLANZAPINE
     Dosage: AT BEDTIME
     Route: 048
  3. INGREZZA [Suspect]
     Active Substance: VALBENAZINE
     Indication: TARDIVE DYSKINESIA
     Route: 048
  4. BENZTROPINE. [Concomitant]
     Active Substance: BENZTROPINE
     Route: 048
  5. WELLBUTRIN XL [Concomitant]
     Active Substance: BUPROPION HYDROCHLORIDE
     Route: 048

REACTIONS (4)
  - Fall [Unknown]
  - Hip fracture [Not Recovered/Not Resolved]
  - Fluid intake reduced [Unknown]
  - Myocardial infarction [Fatal]

NARRATIVE: CASE EVENT DATE: 2019
